FAERS Safety Report 5798265-7 (Version None)
Quarter: 2008Q2

REPORT INFORMATION
  Report Type: 
  Country: None (occurrence: None)
  Receive Date: 20080601
  Receipt Date: 20080118
  Transmission Date: 20081010
  Serious: No
  Sender: FDA-Public Use
  Company Number: US200801005913

PATIENT
  Age: 44 Year
  Sex: Female

DRUGS (9)
  1. BYETTA [Suspect]
     Indication: TYPE 2 DIABETES MELLITUS
     Dosage: 5 UG, 2/D, SUBCUTANEOUS
     Route: 058
     Dates: start: 20071227
  2. EXENATIDE 5MCG PEN, DISPOSABLE DEVICE (EXENATIDE PEN (5MCG)) PEN,DISPO [Concomitant]
  3. GLIPIZIDE [Concomitant]
  4. METFORMIN HCL [Concomitant]
  5. PRECOSE [Concomitant]
  6. LISINOPRIL [Concomitant]
  7. SIMVASTATIN (SINVASTATIN) [Concomitant]
  8. OMEGA (CONVALLARIA MAJALIS, CRATAEGUS LAEVIGATA, PROXPHYLLINE) [Concomitant]
  9. ASPIRIN [Concomitant]

REACTIONS (4)
  - ERYTHEMA [None]
  - INJECTION SITE ERYTHEMA [None]
  - OEDEMA PERIPHERAL [None]
  - URTICARIA [None]
